FAERS Safety Report 5760798-7 (Version None)
Quarter: 2008Q2

REPORT INFORMATION
  Report Type: 
  Country: None (occurrence: None)
  Receive Date: 20080606
  Receipt Date: 20080526
  Transmission Date: 20081010
  Serious: Yes (Other)
  Sender: FDA-Public Use
  Company Number: BR-JNJFOC-20080505573

PATIENT
  Age: 32 Year
  Sex: Female

DRUGS (1)
  1. MICRONOR [Suspect]
     Indication: CONTRACEPTION
     Route: 048

REACTIONS (3)
  - NERVOUSNESS [None]
  - PHARMACEUTICAL PRODUCT COUNTERFEIT [None]
  - SOMNOLENCE [None]
